FAERS Safety Report 9586613 (Version 2)
Quarter: 2013Q4

REPORT INFORMATION
  Report Type: Spontaneous
  Country: IT (occurrence: IT)
  Receive Date: 20131003
  Receipt Date: 20131023
  Transmission Date: 20140711
  Serious: Yes (Hospitalization)
  Sender: FDA-Public Use
  Company Number: IT-SA-2013SA095765

PATIENT
  Age: 65 Year
  Sex: Female
  Weight: 47 kg

DRUGS (6)
  1. OXALIPLATIN [Suspect]
     Indication: ADENOCARCINOMA
     Route: 042
     Dates: start: 20130530
  2. OXALIPLATIN [Suspect]
     Indication: METASTASES TO LIVER
     Route: 042
     Dates: start: 20130530
  3. RESPICUR [Concomitant]
     Indication: CHRONIC OBSTRUCTIVE PULMONARY DISEASE
  4. LASIX [Concomitant]
     Dosage: 25 MG
  5. BLOPRESS [Concomitant]
     Indication: CONGESTIVE CARDIOMYOPATHY
  6. COUMADIN [Concomitant]
     Indication: CONGESTIVE CARDIOMYOPATHY
     Dosage: 5 MG

REACTIONS (3)
  - Paraesthesia [Recovered/Resolved]
  - Nasopharyngitis [Recovered/Resolved]
  - Dysaesthesia pharynx [Recovered/Resolved]
